FAERS Safety Report 19303227 (Version 1)
Quarter: 2021Q2

REPORT INFORMATION
  Report Type: Spontaneous
  Country: PT (occurrence: PT)
  Receive Date: 20210525
  Receipt Date: 20210525
  Transmission Date: 20210717
  Serious: Yes (Other)
  Sender: FDA-Public Use
  Company Number: PHHY2011PT13060

PATIENT
  Age: 37 Year
  Sex: Female

DRUGS (2)
  1. CARBAMAZEPINE. [Suspect]
     Active Substance: CARBAMAZEPINE
     Indication: GENERALISED TONIC-CLONIC SEIZURE
     Route: 065
  2. MIRTAZAPINE. [Suspect]
     Active Substance: MIRTAZAPINE
     Indication: ANXIETY
     Dosage: 15 MG, QD
     Route: 065

REACTIONS (7)
  - Fear [Unknown]
  - Crying [Unknown]
  - Leukopenia [Unknown]
  - Anxiety [Unknown]
  - Drug ineffective [Unknown]
  - Sedation [Unknown]
  - Alopecia [Unknown]
